FAERS Safety Report 9323398 (Version 1)
Quarter: 2013Q2

REPORT INFORMATION
  Report Type: Spontaneous
  Country: CA (occurrence: CA)
  Receive Date: 20130603
  Receipt Date: 20130603
  Transmission Date: 20140414
  Serious: Yes (Other)
  Sender: FDA-Public Use
  Company Number: CA-JNJFOC-20130515773

PATIENT
  Age: 67 Year
  Sex: Female
  Weight: 49.9 kg

DRUGS (7)
  1. RISPERDAL [Suspect]
     Indication: DEMENTIA ALZHEIMER^S TYPE
     Dosage: 1 MG IN AM, 1.5 MG IN AFTERNOON AND 1.5 IN PM
     Route: 048
     Dates: start: 2012
  2. COLACE [Interacting]
     Indication: ABNORMAL FAECES
     Route: 048
     Dates: end: 201302
  3. COLACE [Interacting]
     Indication: ABNORMAL FAECES
     Route: 048
     Dates: start: 2013
  4. ESTROGEN [Concomitant]
     Indication: PRODUCT USED FOR UNKNOWN INDICATION
     Route: 065
  5. PROGESTERONE [Concomitant]
     Indication: PRODUCT USED FOR UNKNOWN INDICATION
     Route: 065
  6. ATIVAN [Concomitant]
     Indication: NERVOUSNESS
     Route: 065
  7. TRAZODONE [Concomitant]
     Indication: SLEEP DISORDER
     Route: 065

REACTIONS (8)
  - Abasia [Not Recovered/Not Resolved]
  - Musculoskeletal disorder [Not Recovered/Not Resolved]
  - Drug interaction [Unknown]
  - Aggression [Recovered/Resolved]
  - Off label use [Unknown]
  - Adverse event [Unknown]
  - Fall [Not Recovered/Not Resolved]
  - Diarrhoea [Unknown]
